FAERS Safety Report 8694039 (Version 2)
Quarter: 2012Q4

REPORT INFORMATION
  Report Type: 
  Country: US (occurrence: US)
  Receive Date: 20120731
  Receipt Date: 20121119
  Transmission Date: 20130627
  Serious: No
  Sender: FDA-Public Use
  Company Number: US-PFIZER INC-2012182964

PATIENT
  Age: 67 Year
  Sex: Male

DRUGS (4)
  1. SUTENT [Suspect]
     Indication: RENAL CANCER METASTATIC
     Dosage: 50 mg (2 capsules of 25 mg), daily for 6 weeks then 2 weeks off-repeat
     Route: 048
     Dates: start: 20120618
  2. COLACE [Concomitant]
     Dosage: UNK
  3. DEXAMETHASONE [Concomitant]
     Dosage: UNK
  4. LOVENOX [Concomitant]
     Dosage: UNK

REACTIONS (4)
  - Stomatitis [Unknown]
  - Oropharyngeal pain [Unknown]
  - Fatigue [Unknown]
  - Off label use [Unknown]
